FAERS Safety Report 14901533 (Version 2)
Quarter: 2018Q2

REPORT INFORMATION
  Report Type: Spontaneous
  Country: GB (occurrence: GB)
  Receive Date: 20180516
  Receipt Date: 20180518
  Transmission Date: 20180711
  Serious: Yes (Death, Life-Threatening, Hospitalization, Other)
  Sender: FDA-Public Use
  Company Number: GB-PFIZER INC-2018199641

PATIENT
  Age: 54 Year
  Sex: Female

DRUGS (2)
  1. HYDROCORTISONE SODIUM SUCCINATE [Suspect]
     Active Substance: HYDROCORTISONE SODIUM SUCCINATE
     Dosage: UNK
     Route: 042
  2. EPINEPHRINE. [Suspect]
     Active Substance: EPINEPHRINE
     Dosage: UNK
     Route: 042

REACTIONS (8)
  - Multiple organ dysfunction syndrome [Fatal]
  - Atrial fibrillation [Unknown]
  - Cardiac arrest [Unknown]
  - Encephalopathy [Unknown]
  - Acute kidney injury [Unknown]
  - Liver function test abnormal [Unknown]
  - Phaeochromocytoma crisis [Fatal]
  - Coagulopathy [Unknown]
